FAERS Safety Report 4397692-2 (Version None)
Quarter: 2004Q3

REPORT INFORMATION
  Report Type: 
  Country: None (occurrence: None)
  Receive Date: 20040713
  Receipt Date: 20040629
  Transmission Date: 20050211
  Serious: Yes (Death)
  Sender: FDA-Public Use
  Company Number: NSADSS2003005375

PATIENT
  Age: 71 Year
  Sex: Male
  Weight: 88.4514 kg

DRUGS (12)
  1. LEVAQUIN [Suspect]
     Indication: URINARY TRACT INFECTION
     Dosage: 500 MG, 2 IN 1 DAY, ORAL
     Route: 048
     Dates: start: 20010130
  2. DIGOXIN [Concomitant]
  3. DIPYRIDAMOLE [Concomitant]
  4. ASPIRIN [Concomitant]
  5. DILANTIN [Concomitant]
  6. ISOSORBIDE (ISOSORBIDE) [Concomitant]
  7. NORVASC [Concomitant]
  8. DEMADEX [Concomitant]
  9. TOPROL (METOPROLOL SUCCINATE) [Concomitant]
  10. CLONIDINE [Concomitant]
  11. ZANTAC [Concomitant]
  12. CARDURA [Concomitant]

REACTIONS (13)
  - ARTHRALGIA [None]
  - BLOOD PRESSURE INCREASED [None]
  - CARDIAC FAILURE [None]
  - CARDIOACTIVE DRUG LEVEL INCREASED [None]
  - DRUG INTOLERANCE [None]
  - NEPHRITIS INTERSTITIAL [None]
  - ORTHOSTATIC HYPOTENSION [None]
  - PARAESTHESIA [None]
  - RENAL ATROPHY [None]
  - RENAL FAILURE ACUTE [None]
  - RENAL FAILURE CHRONIC [None]
  - SYNCOPE [None]
  - TROPONIN INCREASED [None]
